FAERS Safety Report 11648775 (Version 2)
Quarter: 2015Q4

REPORT INFORMATION
  Report Type: Report from Study
  Country: IT (occurrence: IT)
  Receive Date: 20151021
  Receipt Date: 20151207
  Transmission Date: 20160304
  Serious: Yes (Death, Hospitalization)
  Sender: FDA-Public Use
  Company Number: IT-CELGENE-ITA-2015101291

PATIENT
  Age: 67 Year
  Sex: Female
  Weight: 72 kg

DRUGS (43)
  1. DEXAMETHASONE. [Suspect]
     Active Substance: DEXAMETHASONE
     Route: 065
     Dates: start: 20131029, end: 20131109
  2. ANTIVA [Concomitant]
     Indication: PRODUCT USED FOR UNKNOWN INDICATION
     Dosage: 1 PI IN 100SF
     Route: 065
     Dates: start: 20150916, end: 20150921
  3. NOVALGON [Concomitant]
     Indication: PRODUCT USED FOR UNKNOWN INDICATION
     Dosage: 1 PI IN 100SF
     Route: 065
     Dates: start: 20150916, end: 20150921
  4. BORTEZOMIB [Suspect]
     Active Substance: BORTEZOMIB
     Route: 065
  5. PARACETAMOL [Concomitant]
     Active Substance: ACETAMINOPHEN
     Indication: PRODUCT USED FOR UNKNOWN INDICATION
     Dosage: 75 MILLIGRAM
     Route: 048
     Dates: start: 20150818, end: 20150825
  6. CIPROFLOXACIN. [Concomitant]
     Active Substance: CIPROFLOXACIN
     Indication: PRODUCT USED FOR UNKNOWN INDICATION
     Route: 065
     Dates: start: 20150828, end: 20150902
  7. REVLIMID [Suspect]
     Active Substance: LENALIDOMIDE
     Route: 048
     Dates: start: 20131125, end: 20131216
  8. BORTEZOMIB [Suspect]
     Active Substance: BORTEZOMIB
     Indication: PLASMA CELL MYELOMA
     Route: 065
  9. PARACETAMOL [Concomitant]
     Active Substance: ACETAMINOPHEN
     Route: 048
     Dates: start: 20150916, end: 20150918
  10. TRAMADOL. [Concomitant]
     Active Substance: TRAMADOL
     Indication: PRODUCT USED FOR UNKNOWN INDICATION
     Route: 065
     Dates: start: 20150819, end: 20150825
  11. LEXOTAN [Concomitant]
     Active Substance: BROMAZEPAM
     Dosage: .6 MILLILITER
     Route: 065
     Dates: start: 20150911
  12. BORTEZOMIB [Suspect]
     Active Substance: BORTEZOMIB
     Route: 065
     Dates: start: 20131028, end: 20131107
  13. PANTOPRAZOLE [Concomitant]
     Active Substance: PANTOPRAZOLE SODIUM
     Route: 048
     Dates: start: 20150829
  14. DIBASE [Concomitant]
     Active Substance: CHOLECALCIFEROL
     Indication: PRODUCT USED FOR UNKNOWN INDICATION
     Dosage: IU/ML
     Route: 065
     Dates: start: 20150816, end: 20150816
  15. UGUROL [Concomitant]
     Active Substance: TRANEXAMIC ACID
     Indication: PRODUCT USED FOR UNKNOWN INDICATION
     Dosage: 500MG/ 5ML
     Route: 065
     Dates: start: 20150908, end: 20150921
  16. MORPHINE [Concomitant]
     Active Substance: MORPHINE
     Indication: PRODUCT USED FOR UNKNOWN INDICATION
     Dosage: 5 MG IN 100SF
     Route: 065
     Dates: start: 20150918, end: 20150921
  17. REVLIMID [Suspect]
     Active Substance: LENALIDOMIDE
     Indication: PLASMA CELL MYELOMA
     Route: 048
     Dates: start: 20150209, end: 20150815
  18. REVLIMID [Suspect]
     Active Substance: LENALIDOMIDE
     Route: 048
     Dates: start: 20131029, end: 20131119
  19. DEXAMETHASONE. [Suspect]
     Active Substance: DEXAMETHASONE
     Route: 065
     Dates: start: 20131126, end: 20131206
  20. FLUIMUCIL [Concomitant]
     Active Substance: ACETYLCYSTEINE
     Indication: PRODUCT USED FOR UNKNOWN INDICATION
     Route: 048
     Dates: start: 20150816, end: 20150824
  21. CLEXANE [Concomitant]
     Active Substance: ENOXAPARIN SODIUM
     Indication: PRODUCT USED FOR UNKNOWN INDICATION
     Route: 058
     Dates: start: 20150816, end: 20150826
  22. OXYCODONE PERGAMON [Concomitant]
     Indication: PRODUCT USED FOR UNKNOWN INDICATION
     Dosage: 5+325MG
     Route: 065
     Dates: start: 20150827, end: 20150908
  23. ROCEFIN [Concomitant]
     Active Substance: CEFTRIAXONE SODIUM
     Indication: PRODUCT USED FOR UNKNOWN INDICATION
     Dosage: 10+20MG
     Route: 065
     Dates: start: 20150901, end: 20150907
  24. TAZOCIN [Concomitant]
     Active Substance: PIPERACILLIN SODIUM\TAZOBACTAM SODIUM
     Indication: PRODUCT USED FOR UNKNOWN INDICATION
     Route: 065
     Dates: start: 20150916, end: 20150921
  25. DEXAMETHASONE. [Suspect]
     Active Substance: DEXAMETHASONE
     Indication: ADVERSE EVENT
     Route: 065
  26. CITALOPRAM [Concomitant]
     Active Substance: CITALOPRAM HYDROBROMIDE
     Indication: PRODUCT USED FOR UNKNOWN INDICATION
     Route: 048
     Dates: start: 20150816, end: 20150907
  27. PANTOPRAZOLE [Concomitant]
     Active Substance: PANTOPRAZOLE SODIUM
     Indication: PRODUCT USED FOR UNKNOWN INDICATION
     Route: 048
     Dates: start: 20150816, end: 20150828
  28. DIBASE [Concomitant]
     Active Substance: CHOLECALCIFEROL
     Dosage: IU/ML
     Route: 065
     Dates: start: 20150830, end: 20150830
  29. LEXOTAN [Concomitant]
     Active Substance: BROMAZEPAM
     Indication: PRODUCT USED FOR UNKNOWN INDICATION
     Route: 065
     Dates: start: 20150826, end: 20150830
  30. DOBETIN [Concomitant]
     Active Substance: CYANOCOBALAMIN
     Indication: PRODUCT USED FOR UNKNOWN INDICATION
     Route: 065
     Dates: start: 20150826, end: 20150826
  31. UGUROL [Concomitant]
     Active Substance: TRANEXAMIC ACID
     Dosage: 2PL IN 100SF
     Route: 065
     Dates: start: 20150916, end: 20150921
  32. LASIX [Concomitant]
     Active Substance: FUROSEMIDE
     Indication: PRODUCT USED FOR UNKNOWN INDICATION
     Route: 065
     Dates: start: 20150916, end: 20150917
  33. DIBASE [Concomitant]
     Active Substance: CHOLECALCIFEROL
     Dosage: IU/ML
     Route: 065
     Dates: start: 20150823, end: 20150823
  34. PLASIL [Concomitant]
     Active Substance: METOCLOPRAMIDE HYDROCHLORIDE
     Indication: PRODUCT USED FOR UNKNOWN INDICATION
     Route: 065
     Dates: start: 20150827, end: 20150828
  35. AUGMENTIN [Concomitant]
     Active Substance: AMOXICILLIN\CLAVULANATE POTASSIUM
     Indication: PRODUCT USED FOR UNKNOWN INDICATION
     Route: 065
     Dates: start: 20150903, end: 20150907
  36. FENTANIL [Concomitant]
     Active Substance: FENTANYL
     Indication: PRODUCT USED FOR UNKNOWN INDICATION
     Dosage: 1 GRAM
     Route: 062
     Dates: start: 20150910, end: 20150911
  37. LEVOBREN [Concomitant]
     Active Substance: LEVOSULPIRIDE
     Indication: PRODUCT USED FOR UNKNOWN INDICATION
     Dosage: 1 PI IN 100SF
     Route: 065
     Dates: start: 20150916, end: 20150921
  38. BORTEZOMIB [Suspect]
     Active Substance: BORTEZOMIB
     Route: 065
     Dates: start: 20131125, end: 20131205
  39. DEXAMETHASONE. [Suspect]
     Active Substance: DEXAMETHASONE
     Indication: PLASMA CELL MYELOMA
     Route: 065
  40. DEXAMETHASONE. [Suspect]
     Active Substance: DEXAMETHASONE
     Dosage: 8MG IN 100 ML
     Route: 065
     Dates: start: 20150822, end: 20150825
  41. LYRICA [Concomitant]
     Active Substance: PREGABALIN
     Indication: PRODUCT USED FOR UNKNOWN INDICATION
     Route: 048
     Dates: start: 20150815, end: 20150907
  42. CERNEVIT [Concomitant]
     Active Substance: VITAMINS
     Indication: PRODUCT USED FOR UNKNOWN INDICATION
     Dosage: 2PL IN 100 ML SF
     Route: 065
     Dates: start: 20150916, end: 20150921
  43. PURSENNID [Concomitant]
     Active Substance: SENNOSIDES A AND B
     Indication: PRODUCT USED FOR UNKNOWN INDICATION
     Dosage: 1
     Route: 065
     Dates: start: 20150825, end: 20150828

REACTIONS (1)
  - Erythroleukaemia [Fatal]

NARRATIVE: CASE EVENT DATE: 20150815
